FAERS Safety Report 8256818-0 (Version None)
Quarter: 2012Q2

REPORT INFORMATION
  Report Type: 
  Country: None (occurrence: None)
  Receive Date: 20120403
  Receipt Date: 20120330
  Transmission Date: 20120825
  Serious: Yes (Other)
  Sender: FDA-Public Use
  Company Number: PHHY2011JP93366

PATIENT
  Sex: Male
  Weight: 52 kg

DRUGS (6)
  1. AXITINIB [Concomitant]
     Indication: METASTATIC RENAL CELL CARCINOMA
     Dosage: 5 MG
     Route: 048
     Dates: start: 20110204, end: 20110722
  2. ETODOLAC [Concomitant]
     Indication: METASTATIC RENAL CELL CARCINOMA
     Dosage: 400 MG
     Route: 048
     Dates: start: 20110727
  3. RABEPRAZOLE SODIUM [Concomitant]
     Indication: METASTATIC RENAL CELL CARCINOMA
     Dosage: 10 MG
     Route: 048
     Dates: start: 20110728
  4. AFINITOR [Suspect]
     Indication: METASTATIC RENAL CELL CARCINOMA
     Dosage: 10 MG, DAILY
     Route: 048
     Dates: start: 20110812
  5. LOCHOLEST [Concomitant]
     Dosage: 1600 MG
     Route: 048
     Dates: start: 20110823
  6. ALLOPURINOL [Concomitant]
     Dosage: 100 MG
     Route: 048
     Dates: start: 20101216

REACTIONS (1)
  - GAMMA-GLUTAMYLTRANSFERASE INCREASED [None]
